FAERS Safety Report 10173666 (Version 2)
Quarter: 2014Q2

REPORT INFORMATION
  Report Type: Spontaneous
  Country: US (occurrence: US)
  Receive Date: 20140515
  Receipt Date: 20140515
  Transmission Date: 20141212
  Serious: Yes (Hospitalization, Other)
  Sender: FDA-Public Use
  Company Number: US-PFIZER INC-2014121597

PATIENT
  Sex: Male

DRUGS (4)
  1. DILANTIN-125 [Suspect]
     Dosage: 500 MG, 1X/DAY
  2. DILANTIN-125 [Suspect]
     Dosage: 1900 MG (700 MG TWICE IN THE MORNING AND 500 MG ONCE AT NIGHT)
  3. LIPITOR [Suspect]
     Dosage: UNK
  4. ACCUPRIL [Suspect]

REACTIONS (2)
  - Convulsion [Unknown]
  - Anticonvulsant drug level decreased [Unknown]
